FAERS Safety Report 16139967 (Version 5)
Quarter: 2019Q2

REPORT INFORMATION
  Report Type: Spontaneous
  Country: US (occurrence: US)
  Receive Date: 20190331
  Receipt Date: 20190611
  Transmission Date: 20190711
  Serious: Yes (Other)
  Sender: FDA-Public Use
  Company Number: US-AMGEN INC.-USASP2019047705

PATIENT
  Age: 23 Year
  Sex: Female
  Weight: 55.33 kg

DRUGS (6)
  1. LORAZEPAM. [Concomitant]
     Active Substance: LORAZEPAM
     Indication: ANXIETY
     Dosage: 0.5 MILLIGRAM, Q6HR,PRN
     Route: 048
     Dates: start: 20160815
  2. PROPRANOLOL [Concomitant]
     Active Substance: PROPRANOLOL HYDROCHLORIDE
     Dosage: 20 MILLIGRAM, BID
     Route: 048
     Dates: start: 20180730
  3. SUMATRIPTAN. [Concomitant]
     Active Substance: SUMATRIPTAN
     Dosage: 50 MILLIGRAM, AS NECESSARY
     Route: 048
     Dates: start: 20171017
  4. AIMOVIG [Suspect]
     Active Substance: ERENUMAB-AOOE
     Indication: MIGRAINE
     Dosage: 70 MILLIGRAM, QMO (EVERY 30 DAYS)
     Route: 058
     Dates: start: 20181010, end: 20190211
  5. CRYSELLE [Concomitant]
     Active Substance: ETHINYL ESTRADIOL\NORGESTREL
     Dosage: 0.3-30 MG-MCG ONE TABLET PO QDAY
     Route: 048
     Dates: start: 20160815
  6. FIORICET [Concomitant]
     Active Substance: ACETAMINOPHEN\BUTALBITAL\CAFFEINE
     Dosage: 50/325/40 ONE TABLET, AS NECESSARY
     Dates: start: 20180730

REACTIONS (7)
  - Stress [Not Recovered/Not Resolved]
  - Spinal osteoarthritis [Unknown]
  - Meningitis aseptic [Not Recovered/Not Resolved]
  - Cervical spinal stenosis [Not Recovered/Not Resolved]
  - Sleep deficit [Not Recovered/Not Resolved]
  - Panic attack [Not Recovered/Not Resolved]
  - Intervertebral disc degeneration [Unknown]

NARRATIVE: CASE EVENT DATE: 201901
